FAERS Safety Report 8300996-1 (Version None)
Quarter: 2012Q2

REPORT INFORMATION
  Report Type: 
  Country: None (occurrence: None)
  Receive Date: 20120420
  Receipt Date: 20120411
  Transmission Date: 20120825
  Serious: Yes (Death)
  Sender: FDA-Public Use
  Company Number: GB-JNJFOC-20120108082

PATIENT
  Sex: Male

DRUGS (2)
  1. ABIRATERONE [Suspect]
     Indication: PROSTATE CANCER
     Route: 048
  2. IBUPROFEN [Concomitant]
     Route: 065

REACTIONS (1)
  - DEATH [None]
